FAERS Safety Report 5913816-7 (Version None)
Quarter: 2008Q4

REPORT INFORMATION
  Report Type: 
  Country: None (occurrence: None)
  Receive Date: 20081009
  Receipt Date: 20081007
  Transmission Date: 20090506
  Serious: Yes (Hospitalization)
  Sender: FDA-Public Use
  Company Number: A0750181A

PATIENT
  Age: 42 Year
  Sex: Female

DRUGS (3)
  1. ALLI [Suspect]
     Indication: WEIGHT LOSS DIET
     Route: 048
     Dates: start: 20080124, end: 20080926
  2. TOPAMAX [Concomitant]
     Indication: MIGRAINE PROPHYLAXIS
  3. CELEXA [Concomitant]
     Indication: DEPRESSION

REACTIONS (5)
  - CHOLELITHIASIS [None]
  - GALLBLADDER DISORDER [None]
  - NAUSEA [None]
  - PAIN [None]
  - VOMITING [None]
